FAERS Safety Report 20526216 (Version 2)
Quarter: 2022Q1

REPORT INFORMATION
  Report Type: Spontaneous
  Country: CN (occurrence: CN)
  Receive Date: 20220228
  Receipt Date: 20220309
  Transmission Date: 20220423
  Serious: Yes (Death, Other)
  Sender: FDA-Public Use
  Company Number: CN-FOSUNKITE-FOSUNKITE-20220008

PATIENT
  Age: 65 Year
  Sex: Female

DRUGS (21)
  1. YESCARTA [Suspect]
     Active Substance: AXICABTAGENE CILOLEUCEL
     Indication: Diffuse large B-cell lymphoma
     Dosage: UNK
     Route: 041
     Dates: start: 20211220
  2. DEXAMETHASONE [Concomitant]
     Active Substance: DEXAMETHASONE
     Indication: Product used for unknown indication
     Dosage: 5 MG, INTRATHECAL
     Dates: start: 20211214, end: 20211214
  3. DEXAMETHASONE [Concomitant]
     Active Substance: DEXAMETHASONE
     Dosage: UNK
     Dates: start: 20211224
  4. CYTARABINE [Concomitant]
     Active Substance: CYTARABINE
     Indication: Product used for unknown indication
     Dosage: 50 MG, INTRATHECAL
     Dates: start: 20211214, end: 20211214
  5. METHOTREXATE [Concomitant]
     Active Substance: METHOTREXATE
     Indication: Product used for unknown indication
     Dosage: 10 MG, INTRATHECAL
     Dates: start: 20211214, end: 20211214
  6. FLUDARABINE [Concomitant]
     Active Substance: FLUDARABINE PHOSPHATE
     Indication: Lymphodepletion
     Dosage: 45 MG
     Route: 041
     Dates: start: 20211215, end: 20211217
  7. CYCLOPHOSPHAMIDE [Concomitant]
     Active Substance: CYCLOPHOSPHAMIDE
     Indication: Lymphodepletion
     Dosage: 0.75 G
     Route: 041
     Dates: start: 20211215, end: 20211217
  8. MESNA [Concomitant]
     Active Substance: MESNA
     Indication: Prophylaxis
     Dosage: 0.8 G, INTRAVENOUS
     Route: 042
     Dates: start: 20211215, end: 20211217
  9. TROPISETRON [Concomitant]
     Active Substance: TROPISETRON
     Indication: Prophylaxis
     Dosage: 5 MG, INTRAVENOUS
     Route: 042
     Dates: start: 20211215, end: 20211217
  10. PIPERACILLIN AND TAZOBACTAM [Concomitant]
     Active Substance: PIPERACILLIN SODIUM\TAZOBACTAM SODIUM
     Indication: Anti-infective therapy
     Dosage: 4.5 G
     Route: 041
  11. PIPERACILLIN SODIUM\TAZOBACTAM SODIUM [Concomitant]
     Active Substance: PIPERACILLIN SODIUM\TAZOBACTAM SODIUM
     Indication: Anti-infective therapy
     Dosage: 4.5 G
     Route: 041
  12. MAGNESIUM ISOGLYCYRRHIZINATE [Concomitant]
     Active Substance: MAGNESIUM ISOGLYCYRRHIZINATE
     Indication: Prophylaxis
     Dosage: 40 MG
     Route: 041
  13. PHOSPHOLIPID [Concomitant]
     Active Substance: PHOSPHOLIPID
     Indication: Prophylaxis
     Dosage: 232.5 MG
     Route: 041
  14. PANTOPRAZOLE SODIUM [Concomitant]
     Active Substance: PANTOPRAZOLE SODIUM
     Indication: Diarrhoea
     Dosage: 40 MG
     Route: 041
  15. Kangfuxin solution [Concomitant]
     Indication: Product used for unknown indication
     Dosage: GARGLE
  16. ACYCLOVIR [Concomitant]
     Active Substance: ACYCLOVIR
     Indication: Viral infection
     Dosage: 0.2 G
     Route: 048
  17. CASPOFUNGIN [Concomitant]
     Active Substance: CASPOFUNGIN
     Indication: Pyrexia
     Dosage: UNK
     Dates: start: 20211224
  18. VANCOMYCIN [Concomitant]
     Active Substance: VANCOMYCIN
     Indication: Pyrexia
     Dosage: UNK
     Dates: start: 20211224
  19. TAI NING [Concomitant]
     Indication: Pyrexia
     Dosage: UNK
     Dates: start: 20211224
  20. LEVETIRACETAM [Concomitant]
     Active Substance: LEVETIRACETAM
     Indication: Pyrexia
     Dosage: UNK
     Dates: start: 20211224
  21. ALPROSTADIL [Concomitant]
     Active Substance: ALPROSTADIL
     Indication: Pyrexia
     Dosage: UNK
     Dates: start: 20211224

REACTIONS (14)
  - Cytokine release syndrome [Fatal]
  - Haemophagocytic lymphohistiocytosis [Fatal]
  - Acute respiratory distress syndrome [Unknown]
  - Pulmonary haemorrhage [Unknown]
  - Agranulocytosis [Unknown]
  - Sepsis [Unknown]
  - Immunodeficiency [Unknown]
  - Pneumonia fungal [Unknown]
  - Pneumonia bacterial [Unknown]
  - Epilepsy [Unknown]
  - Acute left ventricular failure [Unknown]
  - Metabolic acidosis [Unknown]
  - Hypoproteinaemia [Unknown]
  - Swelling face [Unknown]

NARRATIVE: CASE EVENT DATE: 20211224
